FAERS Safety Report 6255067-5 (Version None)
Quarter: 2009Q3

REPORT INFORMATION
  Report Type: 
  Country: None (occurrence: None)
  Receive Date: 20090702
  Receipt Date: 20090624
  Transmission Date: 20100115
  Serious: Yes (Hospitalization, Other)
  Sender: FDA-Public Use
  Company Number: TR-PFIZER INC-2009232135

PATIENT
  Age: 41 Year

DRUGS (2)
  1. ATORVASTATIN CALCIUM [Suspect]
     Indication: HYPERLIPIDAEMIA
     Dosage: 20 MG, 1X/DAY
  2. COLCHICINE [Suspect]
     Indication: RENAL AMYLOIDOSIS
     Dosage: 1 MG, 1X/DAY

REACTIONS (8)
  - ALANINE AMINOTRANSFERASE INCREASED [None]
  - ASPARTATE AMINOTRANSFERASE INCREASED [None]
  - BLOOD CREATINE PHOSPHOKINASE INCREASED [None]
  - DRUG INTERACTION [None]
  - DYSPNOEA [None]
  - MYALGIA [None]
  - MYOPATHY [None]
  - PERIPHERAL SENSORY NEUROPATHY [None]
